FAERS Safety Report 5694241-3 (Version None)
Quarter: 2008Q2

REPORT INFORMATION
  Report Type: 
  Country: None (occurrence: None)
  Receive Date: 20080403
  Receipt Date: 20080403
  Transmission Date: 20081010
  Serious: Yes (Hospitalization)
  Sender: FDA-Public Use
  Company Number: None

PATIENT
  Age: 63 Year
  Sex: Male
  Weight: 110 kg

DRUGS (1)
  1. NEULASTA [Suspect]
     Indication: NEUTROPENIA
     Dosage: 6MG ONE TIME SQ
     Route: 058
     Dates: start: 20080208, end: 20080208

REACTIONS (9)
  - BITE [None]
  - CANDIDIASIS [None]
  - ENTEROCOCCAL INFECTION [None]
  - INFECTION [None]
  - MYELODYSPLASTIC SYNDROME [None]
  - PANCYTOPENIA [None]
  - SEPSIS PASTEURELLA [None]
  - SPLENIC RUPTURE [None]
  - SPLENOMEGALY [None]
